FAERS Safety Report 5356478-2 (Version None)
Quarter: 2007Q2

REPORT INFORMATION
  Report Type: 
  Country: None (occurrence: None)
  Receive Date: 20070530
  Receipt Date: 20070104
  Transmission Date: 20071010
  Serious: Yes (Hospitalization, Other)
  Sender: FDA-Public Use
  Company Number: US200609006368

PATIENT
  Sex: Female
  Weight: 115.6 kg

DRUGS (2)
  1. ZYPREXA [Suspect]
  2. DIVALPROEX SODIUM [Concomitant]

REACTIONS (5)
  - CHEST PAIN [None]
  - DIABETES MELLITUS [None]
  - HYPERINSULINISM [None]
  - METABOLIC DISORDER [None]
  - PANCREATITIS [None]
